FAERS Safety Report 10850314 (Version 1)
Quarter: 2015Q1

REPORT INFORMATION
  Report Type: Spontaneous
  Country: US (occurrence: US)
  Receive Date: 20150221
  Receipt Date: 20150221
  Transmission Date: 20150721
  Serious: Yes (Other)
  Sender: FDA-Public Use
  Company Number: US-NOVEN-15US013520

PATIENT
  Age: 58 Year
  Sex: Female

DRUGS (1)
  1. COMBIPATCH [Suspect]
     Active Substance: ESTRADIOL\NORETHINDRONE ACETATE
     Indication: HOT FLUSH
     Dosage: 0.05/0.25MCG/DAY, TWICE WEEKLY
     Route: 062
     Dates: start: 1999

REACTIONS (8)
  - Depression [Recovered/Resolved]
  - Suicidal ideation [Recovered/Resolved]
  - Nervousness [Recovered/Resolved]
  - Incorrect drug administration duration [Recovered/Resolved]
  - Emotional distress [Recovered/Resolved]
  - Drug withdrawal syndrome [Recovered/Resolved]
  - Affect lability [Recovered/Resolved]
  - Wrong technique in drug usage process [Recovered/Resolved]

NARRATIVE: CASE EVENT DATE: 2010
